FAERS Safety Report 8196821-2 (Version None)
Quarter: 2012Q1

REPORT INFORMATION
  Report Type: 
  Country: None (occurrence: None)
  Receive Date: 20120309
  Receipt Date: 20120307
  Transmission Date: 20120608
  Serious: Yes (Death, Other)
  Sender: FDA-Public Use
  Company Number: US-PFIZER INC-2012055621

PATIENT
  Sex: Male

DRUGS (2)
  1. SUTENT [Suspect]
  2. SUTENT [Suspect]
     Indication: RENAL CANCER
     Dosage: 12.5 MG, 4X/DAY
     Route: 048
     Dates: start: 20111229

REACTIONS (1)
  - DEATH [None]
